FAERS Safety Report 5807292-2 (Version None)
Quarter: 2008Q3

REPORT INFORMATION
  Report Type: 
  Country: None (occurrence: None)
  Receive Date: 20080711
  Receipt Date: 20060320
  Transmission Date: 20090109
  Serious: Yes (Disabling)
  Sender: FDA-Public Use
  Company Number: IT-ROCHE-571241

PATIENT

DRUGS (2)
  1. PEGASYS [Suspect]
     Route: 065
  2. REBETOL [Suspect]
     Route: 065

REACTIONS (3)
  - ABDOMINAL PAIN UPPER [None]
  - ASTHENIA [None]
  - VERTIGO [None]
